FAERS Safety Report 6852363-5 (Version None)
Quarter: 2010Q3

REPORT INFORMATION
  Report Type: 
  Country: None (occurrence: None)
  Receive Date: 20100717
  Receipt Date: 20071113
  Transmission Date: 20110219
  Serious: No
  Sender: FDA-Public Use
  Company Number: US-PFIZER INC-2007096794

PATIENT
  Sex: Male
  Weight: 165.1 kg

DRUGS (10)
  1. CHANTIX [Suspect]
     Indication: SMOKING CESSATION THERAPY
     Dates: start: 20071031, end: 20071112
  2. ENALAPRIL MALEATE [Concomitant]
  3. BIDIL [Concomitant]
  4. SPIRONOLACTONE [Concomitant]
  5. FUROSEMIDE [Concomitant]
  6. TAMSULOSIN HYDROCHLORIDE [Concomitant]
  7. AVODART [Concomitant]
  8. WARFARIN SODIUM [Concomitant]
  9. ALL OTHER THERAPEUTIC PRODUCTS [Concomitant]
  10. OXYCET [Concomitant]

REACTIONS (4)
  - ABDOMINAL PAIN UPPER [None]
  - DIARRHOEA [None]
  - DYSGEUSIA [None]
  - MALAISE [None]
